FAERS Safety Report 16854898 (Version 2)
Quarter: 2019Q4

REPORT INFORMATION
  Report Type: Spontaneous
  Country: CA (occurrence: CA)
  Receive Date: 20190926
  Receipt Date: 20191115
  Transmission Date: 20200122
  Serious: Yes (Death)
  Sender: FDA-Public Use
  Company Number: CA-SAMSUNG BIOEPIS-SB-2019-27739

PATIENT
  Age: 67 Year
  Sex: Male

DRUGS (3)
  1. IMMUNOGLOBULIN G [Suspect]
     Active Substance: HUMAN IMMUNOGLOBULIN G
     Indication: RESPIRATORY FAILURE
     Dosage: UNKNOWN
     Route: 065
  2. INFLIXIMAB [Suspect]
     Active Substance: INFLIXIMAB
     Indication: MYOCARDITIS
     Dosage: 1 DOSE
     Route: 065
  3. IPI-NOVO [Concomitant]
     Indication: METASTATIC MALIGNANT MELANOMA
     Dosage: AT 3 MG/KG AND 1 MG/KG RESPECTIVELY
     Route: 065

REACTIONS (4)
  - Myocarditis [Fatal]
  - Multiple organ dysfunction syndrome [Fatal]
  - Rhabdomyolysis [Fatal]
  - Off label use [Unknown]
